FAERS Safety Report 8668132 (Version 2)
Quarter: 2012Q4

REPORT INFORMATION
  Report Type: Spontaneous
  Country: SE (occurrence: None)
  Receive Date: 20120629
  Receipt Date: 20120820
  Transmission Date: 20130627
  Serious: Yes (Life-Threatening, Hospitalization, Other)
  Sender: FDA-Public Use
  Company Number: 217829

PATIENT
  Age: 57 Year
  Sex: Male

DRUGS (1)
  1. INNOHEP [Suspect]
     Indication: HAEMODIALYSIS
     Dates: start: 201201, end: 201201

REACTIONS (10)
  - Feeling cold [None]
  - Fluid overload [None]
  - Cardiac arrest [None]
  - Heparin-induced thrombocytopenia [None]
  - Respiratory distress [None]
  - Bronchospasm [None]
  - Hypoxia [None]
  - Sinus tachycardia [None]
  - Anaphylactic reaction [None]
  - Azotaemia [None]
